FAERS Safety Report 9199869 (Version 1)
Quarter: 2013Q1

REPORT INFORMATION
  Report Type: Spontaneous
  Country: CA (occurrence: CA)
  Receive Date: 20130329
  Receipt Date: 20130329
  Transmission Date: 20140127
  Serious: Yes (Hospitalization)
  Sender: FDA-Public Use
  Company Number: CA-TEVA-395432USA

PATIENT
  Age: 90 Year
  Sex: Female
  Weight: 45 kg

DRUGS (7)
  1. ACICLOVIR [Suspect]
     Dosage: 1600 MILLIGRAM DAILY;
     Route: 048
  2. BISOPROLOL [Concomitant]
  3. EMLA [Concomitant]
  4. EPREX [Concomitant]
     Route: 042
  5. PANTOPRAZOLE [Concomitant]
  6. VITALUX-S [Concomitant]
  7. WARFARIN [Concomitant]

REACTIONS (2)
  - Nightmare [Recovered/Resolved]
  - Hallucination, auditory [Recovered/Resolved]
